FAERS Safety Report 21294401 (Version 1)
Quarter: 2022Q3

REPORT INFORMATION
  Report Type: Spontaneous
  Country: US (occurrence: US)
  Receive Date: 20220905
  Receipt Date: 20220905
  Transmission Date: 20221026
  Serious: No
  Sender: FDA-Public Use
  Company Number: US-JNJFOC-20220854806

PATIENT

DRUGS (1)
  1. IMODIUM A-D [Suspect]
     Active Substance: LOPERAMIDE HYDROCHLORIDE
     Indication: Product used for unknown indication
     Dosage: TOOK IT ON MONDAYS, WEDNESDAYS AND FRIDAYS
     Route: 065

REACTIONS (4)
  - Urinary tract infection [Unknown]
  - Constipation [Unknown]
  - Therapeutic response increased [Unknown]
  - Off label use [Unknown]
